FAERS Safety Report 9410935 (Version 1)
Quarter: 2013Q3

REPORT INFORMATION
  Report Type: Spontaneous
  Country: US (occurrence: US)
  Receive Date: 20130719
  Receipt Date: 20130719
  Transmission Date: 20140515
  Serious: No
  Sender: FDA-Public Use
  Company Number: US-PFIZER INC-2013208113

PATIENT
  Sex: Female

DRUGS (3)
  1. ZITHROMAX [Suspect]
     Indication: PERTUSSIS
     Dosage: 250 MG, 2X/DAY FOR 5 DAYS
     Route: 048
  2. ZITHROMAX [Suspect]
     Indication: BRONCHITIS
     Dosage: 250 MG, UNK
     Route: 048
  3. METFORMIN [Concomitant]
     Dosage: UNK

REACTIONS (3)
  - Liver function test abnormal [Unknown]
  - Pain in extremity [Not Recovered/Not Resolved]
  - Arthralgia [Not Recovered/Not Resolved]
